FAERS Safety Report 7721522-1 (Version None)
Quarter: 2011Q3

REPORT INFORMATION
  Report Type: 
  Country: None (occurrence: None)
  Receive Date: 20110831
  Receipt Date: 20110819
  Transmission Date: 20111222
  Serious: Yes (Disabling, Other)
  Sender: FDA-Public Use
  Company Number: GB-JNJFOC-20110812346

PATIENT
  Age: 49 Year
  Sex: Male

DRUGS (15)
  1. VANCOMYCIN [Concomitant]
     Route: 065
  2. GENTAMICIN [Concomitant]
     Route: 065
  3. ACETAMINOPHEN [Concomitant]
     Route: 065
  4. LISINOPRIL [Concomitant]
     Route: 065
  5. OMEPRAZOLE [Concomitant]
     Route: 065
  6. ZINC SULPHATE [Concomitant]
     Route: 065
  7. TRAMADOL HCL [Suspect]
     Indication: PAIN
     Dosage: 100 MG AS NEEDED
     Route: 048
     Dates: start: 20110720, end: 20110804
  8. METRONIDAZOLE [Concomitant]
     Route: 065
  9. ALLOPURINOL [Concomitant]
     Route: 065
  10. ASCORBIC ACID [Concomitant]
     Route: 065
  11. TENORMIN [Concomitant]
     Route: 065
  12. MOVIPREP [Concomitant]
     Route: 065
  13. SENNA [Concomitant]
     Route: 065
  14. LINEZOLID [Suspect]
     Indication: DEVICE RELATED INFECTION
     Dosage: 600 MG TWICE A DAY
     Route: 042
     Dates: start: 20110728, end: 20110805
  15. SIMAVASTATIN [Concomitant]
     Route: 065

REACTIONS (6)
  - AGGRESSION [None]
  - PANCYTOPENIA [None]
  - PARANOIA [None]
  - PSYCHOTIC BEHAVIOUR [None]
  - HALLUCINATIONS, MIXED [None]
  - ABNORMAL BEHAVIOUR [None]
